FAERS Safety Report 6057217-2 (Version None)
Quarter: 2009Q1

REPORT INFORMATION
  Report Type: 
  Country: None (occurrence: None)
  Receive Date: 20090129
  Receipt Date: 20080408
  Transmission Date: 20090719
  Serious: No
  Sender: FDA-Public Use
  Company Number: A0722969A

PATIENT
  Sex: Female

DRUGS (4)
  1. WELLBUTRIN [Suspect]
     Indication: DRUG USE FOR UNKNOWN INDICATION
     Dosage: 150MG TWICE PER DAY
     Route: 048
  2. PROVIGIL [Suspect]
     Indication: NARCOLEPSY
     Dosage: 200MG PER DAY
     Route: 048
  3. CELEXA [Suspect]
     Indication: DRUG USE FOR UNKNOWN INDICATION
     Dosage: 20MG THREE TIMES PER DAY
     Route: 048
  4. ZYPREXA [Suspect]
     Indication: DRUG USE FOR UNKNOWN INDICATION
     Route: 048

REACTIONS (2)
  - DRUG INEFFECTIVE [None]
  - DRUG INTERACTION [None]
